FAERS Safety Report 8788253 (Version 1)
Quarter: 2012Q4

REPORT INFORMATION
  Report Type: 
  Country: US (occurrence: US)
  Receive Date: 20120914
  Receipt Date: 20120914
  Transmission Date: 20130627
  Serious: Yes (Life-Threatening, Hospitalization)
  Sender: FDA-Public Use
  Company Number: US-009507513-1209USA004427

PATIENT

DRUGS (2)
  1. MK-0683 [Suspect]
     Indication: GLIOBLASTOMA MULTIFORME
     Dosage: 300 mg, on days 1-5, weekly
     Route: 048
     Dates: start: 20120716
  2. TEMOZOLOMIDE [Suspect]
     Indication: GLIOBLASTOMA MULTIFORME
     Dosage: 75 mg/m2, qd
     Route: 048
     Dates: start: 20120716

REACTIONS (3)
  - Personality change [Unknown]
  - Weight decreased [Not Recovered/Not Resolved]
  - Decreased appetite [Not Recovered/Not Resolved]
